FAERS Safety Report 13962159 (Version 1)
Quarter: 2017Q3

REPORT INFORMATION
  Report Type: Spontaneous
  Country: FR (occurrence: FR)
  Receive Date: 20170912
  Receipt Date: 20170912
  Transmission Date: 20171128
  Serious: Yes (Other)
  Sender: FDA-Public Use
  Company Number: FR-MERCK KGAA-2025957

PATIENT
  Age: 63 Year
  Sex: Female

DRUGS (4)
  1. VALSARTAN/HYDROCHLOROTHIAZIDE (CO-DIOVAN) [Concomitant]
  2. ALLOPURINOL. [Concomitant]
     Active Substance: ALLOPURINOL
  3. NOVOTHYROX [Suspect]
     Active Substance: LEVOTHYROXINE SODIUM
     Indication: BASEDOW^S DISEASE
     Route: 048
  4. ROSUVASTATIN. [Concomitant]
     Active Substance: ROSUVASTATIN

REACTIONS (3)
  - Insomnia [Unknown]
  - Alopecia [Unknown]
  - Vertigo [Unknown]

NARRATIVE: CASE EVENT DATE: 20170501
